FAERS Safety Report 17236769 (Version 1)
Quarter: 2019Q4

REPORT INFORMATION
  Report Type: Spontaneous
  Country: US (occurrence: US)
  Receive Date: 20191211
  Receipt Date: 20191211
  Transmission Date: 20200122
  Serious: No
  Sender: FDA-Public Use
  Company Number: None

PATIENT
  Age: 70 Year
  Sex: Male
  Weight: 102.97 kg

DRUGS (1)
  1. SEMAGLUTIDE (SEMAGLUTIDE 0.5MG/0.375ML INJ, SOLN, PEN, 1.5ML) [Suspect]
     Active Substance: SEMAGLUTIDE
     Indication: DIABETES MELLITUS
     Dosage: ?          OTHER FREQUENCY:QWEEK;?
     Route: 058
     Dates: start: 20190305, end: 20190326

REACTIONS (1)
  - Heart rate increased [None]

NARRATIVE: CASE EVENT DATE: 20190320
